FAERS Safety Report 4910257-6 (Version None)
Quarter: 2006Q1

REPORT INFORMATION
  Report Type: 
  Country: None (occurrence: None)
  Receive Date: 20060209
  Receipt Date: 20060130
  Transmission Date: 20060701
  Serious: Yes (Death, Hospitalization)
  Sender: FDA-Public Use
  Company Number: 2004217457US

PATIENT
  Age: 59 Year
  Sex: Female
  Weight: 64.6 kg

DRUGS (7)
  1. SUTENT [Suspect]
     Indication: BREAST CANCER
     Dosage: 50 MG (50 MG, 1 IN 1 D), ORAL
     Route: 048
     Dates: start: 20040519, end: 20040531
  2. LORTAB [Concomitant]
  3. AMBIEN [Concomitant]
  4. ALDACTONE [Concomitant]
  5. VITAMIN B6 (VITAMIN B6) [Concomitant]
  6. CENTRUM (MINERALS NOS, VITAMINS NOS) [Concomitant]
  7. STOOL SOFTENER (DOCUSATE SODIUM) [Concomitant]

REACTIONS (8)
  - ABDOMINAL DISTENSION [None]
  - ASCITES [None]
  - DISEASE PROGRESSION [None]
  - LYMPHADENOPATHY [None]
  - MENTAL STATUS CHANGES [None]
  - METASTASES TO LIVER [None]
  - METASTASES TO LYMPH NODES [None]
  - PLEURAL EFFUSION [None]
